FAERS Safety Report 12857462 (Version 1)
Quarter: 2016Q4

REPORT INFORMATION
  Report Type: Spontaneous
  Country: GB (occurrence: GB)
  Receive Date: 20161018
  Receipt Date: 20161018
  Transmission Date: 20170207
  Serious: Yes (Other)
  Sender: FDA-Public Use
  Company Number: GB-PFIZER INC-2016479995

PATIENT
  Age: 54 Year
  Sex: Female
  Weight: 55.78 kg

DRUGS (3)
  1. HYDROXYCHLOROQUINE SULFATE. [Concomitant]
     Active Substance: HYDROXYCHLOROQUINE SULFATE
     Dosage: UNK
  2. SULFASALAZINE. [Concomitant]
     Active Substance: SULFASALAZINE
  3. METHOTREXATE SODIUM. [Suspect]
     Active Substance: METHOTREXATE SODIUM
     Indication: RHEUMATOID ARTHRITIS
     Dosage: 20 MG, UNK
     Route: 051
     Dates: start: 201608

REACTIONS (4)
  - Confusional state [Not Recovered/Not Resolved]
  - Memory impairment [Not Recovered/Not Resolved]
  - Mental impairment [Unknown]
  - Nausea [Not Recovered/Not Resolved]
